FAERS Safety Report 22359802 (Version 1)
Quarter: 2023Q2

REPORT INFORMATION
  Report Type: Spontaneous
  Country: US (occurrence: US)
  Receive Date: 20230524
  Receipt Date: 20230524
  Transmission Date: 20230721
  Serious: No
  Sender: FDA-Public Use
  Company Number: US-APOTEX-2023AP007910

PATIENT
  Sex: Male

DRUGS (1)
  1. OFLOXACIN [Suspect]
     Active Substance: OFLOXACIN
     Indication: Product used for unknown indication
     Dosage: 1 GTT DROPS, QID (DROP IN ONE EYE 4 TIMES A DAY)
     Route: 047

REACTIONS (2)
  - Product dose omission issue [Unknown]
  - Product closure removal difficult [Unknown]
